FAERS Safety Report 8294790 (Version 11)
Quarter: 2014Q1

REPORT INFORMATION
  Report Type: Spontaneous
  Country: GB (occurrence: GB)
  Receive Date: 20111216
  Receipt Date: 20140324
  Transmission Date: 20141002
  Serious: Yes (Hospitalization, Other)
  Sender: FDA-Public Use
  Company Number: GB-ROCHE-1021667

PATIENT
  Age: 34 Year
  Sex: Female
  Weight: 99.8 kg

DRUGS (10)
  1. RITUXIMAB [Suspect]
     Indication: HAEMATOLOGY TEST ABNORMAL
     Route: 042
     Dates: start: 20100917, end: 20101124
  2. NPLATE [Suspect]
     Indication: IMMUNE THROMBOCYTOPENIC PURPURA
     Route: 058
     Dates: start: 20100420, end: 20100920
  3. NPLATE [Suspect]
     Dosage: 1 MG/KG
     Route: 058
     Dates: start: 20100920, end: 20100920
  4. IMMUNOGLOBULIN [Suspect]
     Indication: IMMUNE THROMBOCYTOPENIC PURPURA
     Route: 042
     Dates: start: 20100922, end: 20100923
  5. IMMUNOGLOBULIN [Suspect]
     Route: 042
     Dates: start: 20100922, end: 20100923
  6. LANSOPRAZOLE [Suspect]
     Indication: GASTROOESOPHAGEAL REFLUX PROPHYLAXIS
     Route: 048
     Dates: start: 20100907, end: 20100928
  7. TRANEXAMIC ACID [Suspect]
     Indication: PRODUCT USED FOR UNKNOWN INDICATION
     Route: 048
     Dates: start: 20100922, end: 20100928
  8. NORETHISTERONE [Suspect]
     Indication: PRODUCT USED FOR UNKNOWN INDICATION
     Route: 048
     Dates: start: 20100922, end: 20100928
  9. DEXAMETHASONE [Suspect]
     Indication: ANTIEMETIC SUPPORTIVE CARE
     Dosage: PULSED
     Route: 048
     Dates: start: 20100907, end: 20100910
  10. DEXAMETHASONE [Suspect]
     Dosage: PULSED
     Route: 048
     Dates: start: 20100907, end: 20101010

REACTIONS (9)
  - Rash erythematous [Recovered/Resolved]
  - Rash maculo-papular [Recovered/Resolved]
  - Purpura [Recovered/Resolved]
  - Haemoglobin decreased [Unknown]
  - Melaena [Unknown]
  - Rectal haemorrhage [Unknown]
  - Vaginal haemorrhage [Unknown]
  - Haemorrhage [Unknown]
  - Arthralgia [Unknown]
